FAERS Safety Report 5062802-0 (Version None)
Quarter: 2006Q3

REPORT INFORMATION
  Report Type: 
  Country: None (occurrence: None)
  Receive Date: 20060725
  Receipt Date: 20060725
  Transmission Date: 20061208
  Serious: Yes (Hospitalization)
  Sender: FDA-Public Use
  Company Number: None

PATIENT
  Age: 63 Year
  Sex: Male

DRUGS (9)
  1. GLEEVEC [Suspect]
     Indication: GLIOBLASTOMA MULTIFORME
     Dosage: 500 MG PO
     Route: 048
     Dates: start: 20060627, end: 20060721
  2. HYDROXYUREA [Suspect]
     Indication: GLIOBLASTOMA MULTIFORME
     Dosage: 500 MG PO
     Route: 048
     Dates: start: 20060627, end: 20060721
  3. DECADRON [Concomitant]
  4. DILANTIN [Concomitant]
  5. PROTONIX [Concomitant]
  6. SYNTHROID [Concomitant]
  7. SENOKOT [Concomitant]
  8. TRICOR [Concomitant]
  9. MEPRON [Concomitant]

REACTIONS (1)
  - RECTAL HAEMORRHAGE [None]
